FAERS Safety Report 7782297-3 (Version None)
Quarter: 2011Q3

REPORT INFORMATION
  Report Type: 
  Country: None (occurrence: None)
  Receive Date: 20110927
  Receipt Date: 20110914
  Transmission Date: 20111222
  Serious: Yes (Other)
  Sender: FDA-Public Use
  Company Number: CA-ELI_LILLY_AND_COMPANY-CA201109003676

PATIENT
  Sex: Male

DRUGS (8)
  1. ZYPREXA [Suspect]
     Dosage: 10 MG, QD
  2. ZYPREXA [Suspect]
     Dosage: 15 MG, QD
  3. ZYPREXA [Suspect]
     Dosage: 10 MG, QD
  4. ZYPREXA [Suspect]
     Dosage: 20 MG, QD
  5. ZYPREXA [Suspect]
     Dosage: 5 MG, QD
  6. MICARDIS [Concomitant]
  7. ZYPREXA [Suspect]
     Dosage: 12.5 MG, QD
  8. ZYPREXA [Suspect]
     Dosage: 25 MG, UNKNOWN

REACTIONS (3)
  - LOSS OF CONSCIOUSNESS [None]
  - GLUCOSE TOLERANCE IMPAIRED [None]
  - OVERDOSE [None]
